FAERS Safety Report 7106459-3 (Version None)
Quarter: 2010Q4

REPORT INFORMATION
  Report Type: 
  Country: None (occurrence: None)
  Receive Date: 20101116
  Receipt Date: 20101111
  Transmission Date: 20110411
  Serious: Yes (Death)
  Sender: FDA-Public Use
  Company Number: US-PFIZER INC-2010147145

PATIENT
  Sex: Female

DRUGS (1)
  1. VFEND [Suspect]
     Indication: ACUTE PROMYELOCYTIC LEUKAEMIA
     Dosage: 200 MG, 2X/DAY
     Route: 048

REACTIONS (1)
  - DEATH [None]
